FAERS Safety Report 7045841-X (Version None)
Quarter: 2010Q4

REPORT INFORMATION
  Report Type: 
  Country: None (occurrence: None)
  Receive Date: 20101013
  Receipt Date: 20101013
  Transmission Date: 20110411
  Serious: No
  Sender: FDA-Public Use
  Company Number: None

PATIENT
  Sex: Male
  Weight: 96.1626 kg

DRUGS (2)
  1. OXYCONTIN [Suspect]
     Indication: BACK PAIN
     Dosage: ONE 80 MG TABLET MORNING PO
     Dates: start: 19861015, end: 20101001
  2. OXYCONTIN [Suspect]
     Dosage: ONE 40 MG TABLET NIGHT PO
     Route: 048

REACTIONS (6)
  - DRUG WITHDRAWAL SYNDROME [None]
  - HEADACHE [None]
  - HYPERHIDROSIS [None]
  - INADEQUATE ANALGESIA [None]
  - PRODUCT FORMULATION ISSUE [None]
  - RASH [None]
